FAERS Safety Report 11233233 (Version 2)
Quarter: 2015Q3

REPORT INFORMATION
  Report Type: Spontaneous
  Country: ES (occurrence: ES)
  Receive Date: 20150701
  Receipt Date: 20150709
  Transmission Date: 20151125
  Serious: Yes (Other)
  Sender: FDA-Public Use
  Company Number: ES-AMGEN-ESPSP2015064389

PATIENT
  Age: 53 Year
  Sex: Male

DRUGS (3)
  1. ENALAPRIL/HYDROCHLOROTHIAZIDE [Concomitant]
     Active Substance: ENALAPRIL MALEATE\HYDROCHLOROTHIAZIDE
     Indication: HYPERTENSION
     Dosage: 1 DF, 1X/DAY
  2. ENBREL [Suspect]
     Active Substance: ETANERCEPT
     Indication: PSORIATIC ARTHROPATHY
     Dosage: 50 MG, EVERY 2 WEEKS
     Route: 058
     Dates: start: 20100606
  3. FOLIDOCE [Concomitant]
     Active Substance: CYANOCOBALAMIN\FOLIC ACID
     Indication: LIVER DISORDER
     Dosage: 1 DF, 1X/DAY

REACTIONS (2)
  - Cerebral infarction [Recovered/Resolved]
  - Diplopia [Recovered/Resolved]

NARRATIVE: CASE EVENT DATE: 201408
